FAERS Safety Report 15699059 (Version 1)
Quarter: 2018Q4

REPORT INFORMATION
  Report Type: Spontaneous
  Country: US (occurrence: US)
  Receive Date: 20181127
  Receipt Date: 20181127
  Transmission Date: 20190205
  Serious: Yes (Disabling)
  Sender: FDA-Public Use
  Company Number: None

PATIENT
  Age: 57 Year
  Sex: Female
  Weight: 117 kg

DRUGS (14)
  1. TUMURIC [Concomitant]
  2. METAPROLOL [Concomitant]
     Active Substance: METOPROLOL
  3. GENERIC LORTAB [Suspect]
     Active Substance: ACETAMINOPHEN\HYDROCODONE BITARTRATE
     Indication: BACK PAIN
     Dosage: ?          QUANTITY:180 TABLET(S);OTHER FREQUENCY:1 TABLET 6 TIMES P;?
     Route: 048
     Dates: start: 20180310, end: 20180411
  4. LIDOCAIN TOOICAL [Concomitant]
  5. GENERIC LORTAB [Suspect]
     Active Substance: ACETAMINOPHEN\HYDROCODONE BITARTRATE
     Indication: NECK PAIN
     Dosage: ?          QUANTITY:180 TABLET(S);OTHER FREQUENCY:1 TABLET 6 TIMES P;?
     Route: 048
     Dates: start: 20180310, end: 20180411
  6. GENERIC LORTAB [Suspect]
     Active Substance: ACETAMINOPHEN\HYDROCODONE BITARTRATE
     Indication: SCOLIOSIS
     Dosage: ?          QUANTITY:180 TABLET(S);OTHER FREQUENCY:1 TABLET 6 TIMES P;?
     Route: 048
     Dates: start: 20180310, end: 20180411
  7. OMEPROZOLE [Concomitant]
     Active Substance: OMEPRAZOLE
  8. COLLAGEN [Concomitant]
     Active Substance: COLLAGEN
  9. GENERIC LORTAB [Suspect]
     Active Substance: ACETAMINOPHEN\HYDROCODONE BITARTRATE
     Indication: NEURALGIA
     Dosage: ?          QUANTITY:180 TABLET(S);OTHER FREQUENCY:1 TABLET 6 TIMES P;?
     Route: 048
     Dates: start: 20180310, end: 20180411
  10. LISINOPRIL. [Concomitant]
     Active Substance: LISINOPRIL
  11. SOTOLOL [Concomitant]
     Active Substance: SOTALOL
  12. SOMA [Concomitant]
     Active Substance: CARISOPRODOL
  13. VICODIN [Concomitant]
     Active Substance: ACETAMINOPHEN\HYDROCODONE BITARTRATE
  14. TENS UNIT [Concomitant]

REACTIONS (6)
  - Therapeutic response changed [None]
  - Pain [None]
  - Product formulation issue [None]
  - Drug ineffective [None]
  - Loss of personal independence in daily activities [None]
  - Product complaint [None]

NARRATIVE: CASE EVENT DATE: 20180310
